FAERS Safety Report 8363477-5 (Version None)
Quarter: 2012Q2

REPORT INFORMATION
  Report Type: 
  Country: None (occurrence: None)
  Receive Date: 20120516
  Receipt Date: 20120502
  Transmission Date: 20120825
  Serious: Yes (Life-Threatening, Hospitalization, Other)
  Sender: FDA-Public Use
  Company Number: US-MYLANLABS-2009AC000160

PATIENT
  Age: 60 Year
  Sex: Female
  Weight: 63.5 kg

DRUGS (17)
  1. PLAVIX [Concomitant]
  2. LASIX [Concomitant]
  3. UNIVASC [Concomitant]
  4. PRAVACHOL [Concomitant]
  5. ASPIRIN [Concomitant]
  6. ISORDIL [Concomitant]
  7. ISOSORBIDE DINITRATE [Concomitant]
  8. FUROSEMIDE [Concomitant]
  9. ISOSORBIDE DINITRATE [Concomitant]
  10. XANAX [Concomitant]
  11. TENORMIN [Concomitant]
  12. NITROSTAT [Concomitant]
  13. ATENOLOL [Concomitant]
  14. MOEXIPRIL HYDROCHLORIDE [Concomitant]
  15. DIGOXIN [Suspect]
     Indication: CARDIAC DISORDER
     Route: 048
     Dates: start: 19960101, end: 20090820
  16. COUMADIN [Concomitant]
  17. AMITRIP [Concomitant]

REACTIONS (39)
  - CARDIOMYOPATHY [None]
  - PERIPHERAL VASCULAR DISORDER [None]
  - TOXICITY TO VARIOUS AGENTS [None]
  - SPEECH DISORDER [None]
  - ECHOCARDIOGRAM ABNORMAL [None]
  - ELECTROCARDIOGRAM ABNORMAL [None]
  - LACUNAR INFARCTION [None]
  - MITRAL VALVE INCOMPETENCE [None]
  - ANGIOPLASTY [None]
  - SPINAL OSTEOARTHRITIS [None]
  - CEREBROVASCULAR ACCIDENT [None]
  - HEMIPARESIS [None]
  - FACIAL PARESIS [None]
  - LEFT VENTRICULAR HYPERTROPHY [None]
  - CATHETERISATION CARDIAC ABNORMAL [None]
  - CHEST X-RAY ABNORMAL [None]
  - CORONARY ARTERIAL STENT INSERTION [None]
  - SCAN MYOCARDIAL PERFUSION ABNORMAL [None]
  - APHASIA [None]
  - EJECTION FRACTION DECREASED [None]
  - CARDIAC FAILURE CONGESTIVE [None]
  - BACK PAIN [None]
  - CAROTID BRUIT [None]
  - MUSCULAR WEAKNESS [None]
  - NUCLEAR MAGNETIC RESONANCE IMAGING BRAIN ABNORMAL [None]
  - PRESYNCOPE [None]
  - VENTRICULAR EXTRASYSTOLES [None]
  - CARDIOACTIVE DRUG LEVEL DECREASED [None]
  - SINUS BRADYCARDIA [None]
  - HYPERTENSION [None]
  - CAROTID ARTERY STENOSIS [None]
  - HYPERCHOLESTEROLAEMIA [None]
  - PULMONARY HYPERTENSION [None]
  - CARDIAC MURMUR [None]
  - CORONARY ARTERY DISEASE [None]
  - ASTHENIA [None]
  - CARDIOMEGALY [None]
  - COMPUTERISED TOMOGRAM ABNORMAL [None]
  - SUPRAVENTRICULAR EXTRASYSTOLES [None]
